FAERS Safety Report 9522322 (Version 2)
Quarter: 2013Q4

REPORT INFORMATION
  Report Type: Spontaneous
  Country: BR (occurrence: BR)
  Receive Date: 20130913
  Receipt Date: 20131021
  Transmission Date: 20140711
  Serious: Yes (Hospitalization, Other)
  Sender: FDA-Public Use
  Company Number: BR-NOVOPROD-387129

PATIENT
  Age: 65 Year
  Sex: Female
  Weight: 55 kg

DRUGS (4)
  1. NOVORAPID FLEXPEN [Suspect]
     Indication: TYPE 2 DIABETES MELLITUS
     Dosage: UNK (4 IU)
     Route: 058
     Dates: start: 2007
  2. LEVEMIR FLEXPEN [Suspect]
     Indication: TYPE 2 DIABETES MELLITUS
     Dosage: 22 IU
     Route: 058
     Dates: start: 2003
  3. LOSARTAN [Concomitant]
     Indication: HYPERTENSION
     Dosage: UNK (1 TAB, 50MG)
     Route: 048
  4. AMLODIPINE [Concomitant]
     Indication: HYPERTENSION
     Dosage: UNK (1 TAB, 5 MG)
     Route: 048

REACTIONS (3)
  - Ovarian cancer [Not Recovered/Not Resolved]
  - Diabetic foot [Recovered/Resolved]
  - Blood glucose fluctuation [Unknown]
